FAERS Safety Report 6903400-0 (Version None)
Quarter: 2010Q3

REPORT INFORMATION
  Report Type: 
  Country: None (occurrence: None)
  Receive Date: 20100803
  Receipt Date: 20080925
  Transmission Date: 20110219
  Serious: No
  Sender: FDA-Public Use
  Company Number: US-PFIZER INC-2008082145

PATIENT
  Sex: Male
  Weight: 91.818 kg

DRUGS (4)
  1. LYRICA [Suspect]
     Indication: PAIN
     Dates: start: 20070701
  2. ULTRAM [Concomitant]
  3. SOMA [Concomitant]
  4. DARVOCET [Concomitant]

REACTIONS (2)
  - AMNESIA [None]
  - MALE SEXUAL DYSFUNCTION [None]
